FAERS Safety Report 23024582 (Version 1)
Quarter: 2023Q4

REPORT INFORMATION
  Report Type: Spontaneous
  Country: US (occurrence: US)
  Receive Date: 20231004
  Receipt Date: 20231004
  Transmission Date: 20240110
  Serious: Yes (Other)
  Sender: FDA-Public Use
  Company Number: US-HISAMITSU PHARMACEUTICAL CO., INC.-2023-NOV-US001103

PATIENT
  Sex: Female

DRUGS (2)
  1. SECUADO [Suspect]
     Active Substance: ASENAPINE
     Indication: Product used for unknown indication
     Dosage: 3.8 MG, UNKNOWN
     Route: 062
     Dates: start: 2023
  2. OXYCODONE [Suspect]
     Active Substance: OXYCODONE
     Indication: Product used for unknown indication
     Dosage: UNKNOWN
     Route: 065
     Dates: start: 202309, end: 202309

REACTIONS (6)
  - Cholecystectomy [Recovered/Resolved]
  - Brain fog [Unknown]
  - Abdominal tenderness [Not Recovered/Not Resolved]
  - Application site irritation [Unknown]
  - Product administered at inappropriate site [Unknown]
  - Product administration error [Recovered/Resolved]

NARRATIVE: CASE EVENT DATE: 20230901
